FAERS Safety Report 4772278-6 (Version None)
Quarter: 2005Q3

REPORT INFORMATION
  Report Type: 
  Country: None (occurrence: None)
  Receive Date: 20050919
  Receipt Date: 20050526
  Transmission Date: 20060218
  Serious: No
  Sender: FDA-Public Use
  Company Number: US-BRISTOL-MYERS SQUIBB COMPANY-12984720

PATIENT
  Age: 36 Year
  Sex: Female

DRUGS (1)
  1. DEFINITY [Suspect]
     Route: 040
     Dates: start: 20050524

REACTIONS (2)
  - CHEST PAIN [None]
  - DYSPEPSIA [None]
